FAERS Safety Report 7183141-8 (Version None)
Quarter: 2010Q4

REPORT INFORMATION
  Report Type: 
  Country: None (occurrence: None)
  Receive Date: 20101222
  Receipt Date: 20101220
  Transmission Date: 20110411
  Serious: No
  Sender: FDA-Public Use
  Company Number: US-PFIZER INC-2010176011

PATIENT
  Sex: Female
  Weight: 118.82 kg

DRUGS (10)
  1. TIKOSYN [Suspect]
     Indication: ATRIAL FIBRILLATION
     Dosage: 250 UG, 2X/DAY
     Route: 048
     Dates: start: 20101129
  2. OMEPRAZOLE [Concomitant]
     Dosage: UNK
     Dates: start: 20100601
  3. FUROSEMIDE [Concomitant]
     Dosage: UNK
  4. POTASSIUM [Concomitant]
     Dosage: UNK
  5. LISINOPRIL [Concomitant]
     Dosage: UNK
  6. ALLOPURINOL [Concomitant]
     Indication: GOUT
     Dosage: UNK
  7. MIRAPEX [Concomitant]
     Dosage: UNK
  8. METOPROLOL [Concomitant]
     Dosage: UNK
  9. ACTONEL [Concomitant]
     Indication: OSTEOPOROSIS
     Dosage: UNK
  10. LEVOTHYROXINE [Concomitant]
     Dosage: UNK
     Dates: start: 20090101

REACTIONS (1)
  - VAGINAL HAEMORRHAGE [None]
